FAERS Safety Report 5179430-9 (Version None)
Quarter: 2006Q4

REPORT INFORMATION
  Report Type: 
  Country: None (occurrence: None)
  Receive Date: 20061211
  Receipt Date: 20061127
  Transmission Date: 20070319
  Serious: Yes (Other)
  Sender: FDA-Public Use
  Company Number: URSO-2006-050

PATIENT
  Age: 61 Year
  Sex: Male

DRUGS (7)
  1. URSO (URSODEOXYCHOLIC ACID) [Suspect]
     Dosage: 300 MG PO
     Route: 048
     Dates: start: 20060428, end: 20060622
  2. URSO (URSODEOXYCHOLIC ACID) [Suspect]
     Dosage: 300 MG PO
     Route: 048
     Dates: start: 20060811, end: 20061005
  3. MARZULENE-S (SODIUM AZULENE L-GLUTAMINE) [Concomitant]
  4. LEVOTHYROXINE SODIUM [Concomitant]
  5. GLYCYRON (GLYCYRRHIZIC ACID, DL-METHIONINE COMBINED DRUG) [Concomitant]
  6. SELBEX (TEPRENONE) [Concomitant]
  7. DEPAS (ETIZOLAM) [Concomitant]

REACTIONS (1)
  - INTERSTITIAL LUNG DISEASE [None]
